FAERS Safety Report 13353968 (Version 5)
Quarter: 2019Q3

REPORT INFORMATION
  Report Type: Report from Study
  Country: CN (occurrence: CN)
  Receive Date: 20170321
  Receipt Date: 20190828
  Transmission Date: 20191004
  Serious: Yes (Hospitalization)
  Sender: FDA-Public Use
  Company Number: CN-ROCHE-1908778

PATIENT
  Age: 58 Year
  Sex: Male
  Weight: 70 kg

DRUGS (12)
  1. VITAMIN B6 [Concomitant]
     Active Substance: PYRIDOXINE HYDROCHLORIDE
     Indication: PYREXIA
     Route: 065
     Dates: start: 20170316, end: 20170316
  2. CELEBREX [Concomitant]
     Active Substance: CELECOXIB
     Indication: PYREXIA
     Route: 048
     Dates: start: 20170316, end: 20170323
  3. CELECOXIB. [Concomitant]
     Active Substance: CELECOXIB
     Indication: ANALGESIC THERAPY
     Route: 065
     Dates: start: 20170316, end: 20170316
  4. NIFEDIPINE. [Concomitant]
     Active Substance: NIFEDIPINE
     Indication: HYPERTENSION
     Route: 048
     Dates: start: 20150504
  5. TEPRENONE [Concomitant]
     Active Substance: TEPRENONE
     Route: 065
     Dates: start: 20170319, end: 20170323
  6. VITAMIN C [Concomitant]
     Active Substance: ASCORBIC ACID
     Route: 065
     Dates: start: 20170316, end: 20170316
  7. ATEZOLIZUMAB. [Suspect]
     Active Substance: ATEZOLIZUMAB
     Indication: NON-SMALL CELL LUNG CANCER
     Dosage: MOST RECENT DOSE: 02/MAR/2017 (1200 MG).?STARTING DOSE AS PER PROTOCOL
     Route: 042
     Dates: start: 20170302
  8. TELMISARTAN. [Concomitant]
     Active Substance: TELMISARTAN
     Indication: HYPERTENSION
     Route: 048
     Dates: start: 20150203
  9. MOXIFLOXACIN. [Concomitant]
     Active Substance: MOXIFLOXACIN
     Route: 065
     Dates: start: 20170316, end: 20170316
  10. SMECTA [Concomitant]
     Active Substance: MONTMORILLONITE
     Indication: DIARRHOEA
     Route: 065
     Dates: start: 20170321, end: 20170323
  11. MOXIFLOXACIN. [Concomitant]
     Active Substance: MOXIFLOXACIN
     Dosage: 0.4 G IV GTT
     Route: 042
     Dates: start: 20170316, end: 20170321
  12. MOXIFLOXACIN. [Concomitant]
     Active Substance: MOXIFLOXACIN
     Route: 065
     Dates: start: 20170311, end: 20170321

REACTIONS (1)
  - Haemoptysis [Recovered/Resolved]

NARRATIVE: CASE EVENT DATE: 20170311
